FAERS Safety Report 13106598 (Version 1)
Quarter: 2017Q1

REPORT INFORMATION
  Report Type: Spontaneous
  Country: US (occurrence: US)
  Receive Date: 20170111
  Receipt Date: 20170111
  Transmission Date: 20170428
  Serious: No
  Sender: FDA-Public Use
  Company Number: US-BIOGEN-2017BI00338591

PATIENT
  Sex: Female
  Weight: 86.26 kg

DRUGS (1)
  1. ZINBRYTA [Suspect]
     Active Substance: DACLIZUMAB
     Indication: PRODUCT USED FOR UNKNOWN INDICATION
     Route: 058
     Dates: end: 20161230

REACTIONS (4)
  - Multiple sclerosis relapse [Unknown]
  - Adverse reaction [Unknown]
  - Hypoaesthesia [Unknown]
  - Gait disturbance [Unknown]
